FAERS Safety Report 9165054 (Version 1)
Quarter: 2013Q1

REPORT INFORMATION
  Report Type: Spontaneous
  Country: US (occurrence: None)
  Receive Date: 20130313
  Receipt Date: 20130313
  Transmission Date: 20140127
  Serious: No
  Sender: FDA-Public Use
  Company Number: None

PATIENT
  Age: 65 Year
  Sex: Male
  Weight: 106.1 kg

DRUGS (1)
  1. EPLERENONE [Suspect]
     Indication: CARDIAC FAILURE CONGESTIVE
     Dosage: MG PO
     Route: 048
     Dates: start: 20130103, end: 20130214

REACTIONS (2)
  - Gynaecomastia [None]
  - Breast pain [None]
